FAERS Safety Report 5858516-7 (Version None)
Quarter: 2008Q3

REPORT INFORMATION
  Report Type: 
  Country: None (occurrence: None)
  Receive Date: 20080818
  Receipt Date: 20080528
  Transmission Date: 20090109
  Serious: No
  Sender: FDA-Public Use
  Company Number: TPA2008A00804

PATIENT
  Sex: Female

DRUGS (1)
  1. ROZEREM [Suspect]
     Dosage: 8 MG, HS, PER ORAL ; 4 MG, HS, PER ORAL ; SMALL PIECE OF 8 MG TABLET, HS, PER ORAL
     Route: 048

REACTIONS (2)
  - DYSKINESIA [None]
  - UNDERDOSE [None]
